FAERS Safety Report 20768018 (Version 1)
Quarter: 2022Q2

REPORT INFORMATION
  Report Type: Report from Study
  Country: EG (occurrence: EG)
  Receive Date: 20220429
  Receipt Date: 20220429
  Transmission Date: 20220721
  Serious: Yes (Other)
  Sender: FDA-Public Use
  Company Number: EG-NOVARTISPH-NVSC2022EG096800

PATIENT
  Age: 70 Year
  Sex: Female

DRUGS (18)
  1. ENTRESTO [Suspect]
     Active Substance: SACUBITRIL\VALSARTAN
     Indication: Product used for unknown indication
     Dosage: 100 MG, BID (49/51 MG)
     Route: 048
     Dates: start: 202001, end: 202108
  2. ENTRESTO [Suspect]
     Active Substance: SACUBITRIL\VALSARTAN
     Dosage: 200 MG, BID (97/103 MG)
     Route: 048
     Dates: start: 202108
  3. CHOLEROSE [Concomitant]
     Indication: Product used for unknown indication
     Dosage: 20 MG, QD
     Route: 048
     Dates: start: 2020
  4. TORSEMIDE [Concomitant]
     Active Substance: TORSEMIDE
     Indication: Product used for unknown indication
     Dosage: UNK, QD
     Route: 065
     Dates: start: 2020
  5. VASTAREL [Concomitant]
     Active Substance: TRIMETAZIDINE DIHYDROCHLORIDE
     Indication: Product used for unknown indication
     Dosage: UNK, QD (2 TABLES)
     Route: 048
     Dates: start: 2020
  6. DILATROL [Concomitant]
     Indication: Product used for unknown indication
     Dosage: 25 MG, BID (HALF TAB)
     Route: 048
     Dates: start: 2020
  7. PLAVIX [Concomitant]
     Active Substance: CLOPIDOGREL BISULFATE
     Indication: Product used for unknown indication
     Dosage: 75 MG, QD
     Route: 048
     Dates: start: 2020
  8. NEURONTIN [Concomitant]
     Active Substance: GABAPENTIN
     Indication: Product used for unknown indication
     Dosage: 300 MG, QD
     Route: 048
     Dates: start: 2020
  9. DAPAGLIFLOZIN [Concomitant]
     Active Substance: DAPAGLIFLOZIN
     Indication: Product used for unknown indication
     Dosage: 10 MG, QD
     Route: 048
     Dates: start: 2020
  10. GASTRAZOLE D [Concomitant]
     Indication: Product used for unknown indication
     Dosage: 20 MG, QD
     Route: 048
     Dates: start: 2020
  11. LIBRAX [Concomitant]
     Active Substance: CHLORDIAZEPOXIDE HYDROCHLORIDE\CLIDINIUM BROMIDE
     Indication: Product used for unknown indication
     Dosage: UNK, QD
     Route: 048
     Dates: start: 2020
  12. CARDIXIN [Concomitant]
     Indication: Product used for unknown indication
     Dosage: 0.25 MG, QD (HALF TAB)
     Route: 048
     Dates: start: 2020
  13. MOODAPEX [Concomitant]
     Indication: Product used for unknown indication
     Dosage: 50 MG, QD
     Route: 048
     Dates: start: 2020
  14. ALLOPURINOL [Concomitant]
     Active Substance: ALLOPURINOL
     Indication: Gout
     Dosage: UNK, QD
     Route: 048
     Dates: start: 2020
  15. CIDOPHAGE [Concomitant]
     Indication: Diabetes mellitus
     Dosage: 1000 MG, QD
     Route: 048
     Dates: start: 2020
  16. INSULIN NOS [Concomitant]
     Active Substance: INSULIN NOS
     Indication: Diabetes mellitus
     Dosage: 10 MG, QD (BEFORE MEAL)
     Route: 065
     Dates: start: 2020
  17. INSULIN NOS [Concomitant]
     Active Substance: INSULIN NOS
     Dosage: 30 MG, QD (AFTER MEAL)
     Route: 065
     Dates: start: 2020
  18. PANADOL [Concomitant]
     Active Substance: ACETAMINOPHEN
     Indication: Headache
     Dosage: UNK (FROM ONE TO TWO TABLETS (ONLY WHEN SUFFERING FROM HEADACHE))
     Route: 048
     Dates: start: 2020

REACTIONS (23)
  - Angina pectoris [Not Recovered/Not Resolved]
  - Lacrimation increased [Not Recovered/Not Resolved]
  - Hyperhidrosis [Not Recovered/Not Resolved]
  - Contusion [Recovering/Resolving]
  - Joint swelling [Not Recovered/Not Resolved]
  - Weight decreased [Not Recovered/Not Resolved]
  - Pain in extremity [Not Recovered/Not Resolved]
  - Hypoaesthesia [Not Recovered/Not Resolved]
  - Rectal haemorrhage [Recovered/Resolved]
  - Dizziness [Not Recovered/Not Resolved]
  - Hypotension [Recovering/Resolving]
  - Heart rate increased [Recovering/Resolving]
  - Immunodeficiency [Unknown]
  - Nasopharyngitis [Unknown]
  - Nervous system disorder [Recovering/Resolving]
  - Herpes zoster [Recovered/Resolved]
  - Inflammation [Recovered/Resolved]
  - Blood glucose increased [Unknown]
  - Dyskinesia [Not Recovered/Not Resolved]
  - Arterial haemorrhage [Recovering/Resolving]
  - Temperature intolerance [Not Recovered/Not Resolved]
  - Fall [Not Recovered/Not Resolved]
  - Alopecia [Not Recovered/Not Resolved]

NARRATIVE: CASE EVENT DATE: 20200101
